FAERS Safety Report 11375384 (Version 2)
Quarter: 2015Q4

REPORT INFORMATION
  Report Type: Spontaneous
  Country: US (occurrence: US)
  Receive Date: 20150813
  Receipt Date: 20151104
  Transmission Date: 20160304
  Serious: Yes (Hospitalization, Other)
  Sender: FDA-Public Use
  Company Number: US-ELI_LILLY_AND_COMPANY-US201508003424

PATIENT
  Age: 49 Year
  Sex: Male
  Weight: 95.24 kg

DRUGS (6)
  1. NIACIN. [Concomitant]
     Active Substance: NIACIN
     Dosage: UNK, QD
     Route: 048
  2. CINNAMON                           /01647501/ [Concomitant]
     Active Substance: CINNAMON
     Dosage: UNK, QD
     Route: 048
  3. VICODIN [Concomitant]
     Active Substance: ACETAMINOPHEN\HYDROCODONE BITARTRATE
     Dosage: UNK, PRN
     Route: 048
  4. AXIRON [Suspect]
     Active Substance: TESTOSTERONE
     Indication: ANDROGEN REPLACEMENT THERAPY
     Dosage: 60 MG, QD
     Route: 061
     Dates: start: 20130506, end: 20130820
  5. FISH OIL [Concomitant]
     Active Substance: FISH OIL
     Dosage: UNK, QD
     Route: 048
  6. SYNTHROID [Concomitant]
     Active Substance: LEVOTHYROXINE SODIUM
     Dosage: 100 UG, QD
     Route: 048

REACTIONS (2)
  - Pulmonary embolism [Recovered/Resolved]
  - Deep vein thrombosis [Recovered/Resolved]

NARRATIVE: CASE EVENT DATE: 20130808
